FAERS Safety Report 12561378 (Version 1)
Quarter: 2016Q3

REPORT INFORMATION
  Report Type: Spontaneous
  Country: FR (occurrence: FR)
  Receive Date: 20160715
  Receipt Date: 20160715
  Transmission Date: 20161109
  Serious: Yes (Hospitalization)
  Sender: FDA-Public Use
  Company Number: FR-PFIZER INC-2016337284

PATIENT
  Age: 4 Year
  Sex: Female

DRUGS (9)
  1. PIVALONE [Suspect]
     Active Substance: TIXOCORTOL PIVALATE
     Indication: TONSILLITIS
     Dosage: UNK
     Route: 045
     Dates: start: 20160612, end: 20160618
  2. ADVIL [Suspect]
     Active Substance: IBUPROFEN
     Indication: PYREXIA
     Dosage: UNK
     Route: 048
     Dates: start: 20160610, end: 20160618
  3. DOLIPRANE [Concomitant]
     Active Substance: ACETAMINOPHEN
     Indication: PYREXIA
     Dosage: UNK
     Dates: start: 20160610
  4. AMOXICILLIN. [Concomitant]
     Active Substance: AMOXICILLIN
     Dosage: UNK
     Dates: start: 20160612, end: 20160618
  5. PIVALONE [Suspect]
     Active Substance: TIXOCORTOL PIVALATE
     Indication: LYMPHADENITIS
  6. ORELOX [Concomitant]
     Active Substance: CEFPODOXIME
     Indication: EAR INFECTION
     Dosage: UNK
     Dates: start: 201606
  7. PRIMALAN [Concomitant]
     Active Substance: MEQUITAZINE
     Indication: URTICARIA
     Dosage: UNK
     Dates: start: 20160612
  8. CELESTENE [Suspect]
     Active Substance: BETAMETHASONE
     Indication: LYMPHADENITIS
     Dosage: 1 MG/KG, DAILY
     Route: 048
     Dates: start: 20160613, end: 20160618
  9. ORELOX [Concomitant]
     Active Substance: CEFPODOXIME
     Indication: TONSILLITIS
     Dosage: UNK
     Dates: start: 20160612

REACTIONS (3)
  - Infection [Recovered/Resolved]
  - Condition aggravated [Recovered/Resolved]
  - Rash [Unknown]

NARRATIVE: CASE EVENT DATE: 20160616
